FAERS Safety Report 9239326 (Version 1)
Quarter: 2013Q2

REPORT INFORMATION
  Report Type: Spontaneous
  Country: US (occurrence: US)
  Receive Date: 20130418
  Receipt Date: 20130418
  Transmission Date: 20140414
  Serious: No
  Sender: FDA-Public Use
  Company Number: US-SANOFI-AVENTIS-2012SA071076

PATIENT
  Age: 58 Year
  Sex: Female

DRUGS (2)
  1. ENOXAPARIN SODIUM - WINTHROP [Suspect]
     Indication: DEEP VEIN THROMBOSIS
     Route: 065
     Dates: start: 201201
  2. ENOXAPARIN SODIUM - WINTHROP [Suspect]
     Indication: PULMONARY EMBOLISM
     Route: 065
     Dates: start: 201201

REACTIONS (6)
  - Headache [Recovered/Resolved]
  - Back pain [Not Recovered/Not Resolved]
  - Burning sensation [Not Recovered/Not Resolved]
  - Injection site mass [Unknown]
  - Injection site bruising [Recovered/Resolved]
  - Injection site pain [Recovered/Resolved]
